FAERS Safety Report 21253366 (Version 1)
Quarter: 2022Q3

REPORT INFORMATION
  Report Type: Spontaneous
  Country: US (occurrence: None)
  Receive Date: 20220824
  Receipt Date: 20220824
  Transmission Date: 20221027
  Serious: Yes (Hospitalization)
  Sender: FDA-Public Use
  Company Number: None

PATIENT
  Age: 74 Year
  Sex: Male
  Weight: 98 kg

DRUGS (1)
  1. REMDESIVIR [Suspect]
     Active Substance: REMDESIVIR
     Indication: COVID-19
     Route: 042
     Dates: start: 20220804, end: 20220806

REACTIONS (5)
  - Abdominal pain upper [None]
  - Hypophagia [None]
  - Liver function test increased [None]
  - Acute kidney injury [None]
  - Pancreatitis acute [None]

NARRATIVE: CASE EVENT DATE: 20220817
